FAERS Safety Report 11020613 (Version 2)
Quarter: 2015Q3

REPORT INFORMATION
  Report Type: Spontaneous
  Country: AR (occurrence: AR)
  Receive Date: 20150413
  Receipt Date: 20150802
  Transmission Date: 20151125
  Serious: Yes (Hospitalization, Other)
  Sender: FDA-Public Use
  Company Number: AR-AMGEN-ARGSP2015019632

PATIENT
  Age: 66 Year
  Sex: Female

DRUGS (1)
  1. ENBREL [Suspect]
     Active Substance: ETANERCEPT
     Indication: RHEUMATOID ARTHRITIS
     Dosage: 50 MG, WEEKLY
     Route: 065
     Dates: start: 20131029

REACTIONS (8)
  - Foreign body [Unknown]
  - Dyspnoea [Unknown]
  - Malaise [Recovering/Resolving]
  - Blood pressure decreased [Not Recovered/Not Resolved]
  - Lung disorder [Unknown]
  - Cardiac disorder [Unknown]
  - Bronchospasm [Unknown]
  - Pneumonia [Recovering/Resolving]

NARRATIVE: CASE EVENT DATE: 20150223
